FAERS Safety Report 7103431-4 (Version None)
Quarter: 2010Q4

REPORT INFORMATION
  Report Type: 
  Country: None (occurrence: None)
  Receive Date: 20101115
  Receipt Date: 20101102
  Transmission Date: 20110411
  Serious: Yes (Hospitalization)
  Sender: FDA-Public Use
  Company Number: PL-WATSON-2010-14483

PATIENT
  Age: 27 Year
  Sex: Male

DRUGS (1)
  1. FUROSEMIDE [Suspect]
     Indication: DRUG ABUSE
     Dosage: 20-30 TABLETS DAILY
     Route: 048

REACTIONS (2)
  - DRUG ABUSE [None]
  - PSEUDO-BARTTER SYNDROME [None]
